FAERS Safety Report 7369334-5 (Version None)
Quarter: 2011Q1

REPORT INFORMATION
  Report Type: 
  Country: None (occurrence: None)
  Receive Date: 20110323
  Receipt Date: 20110314
  Transmission Date: 20110831
  Serious: Yes (Hospitalization, Disabling)
  Sender: FDA-Public Use
  Company Number: B0707516A

PATIENT
  Age: 2 Year
  Sex: Male
  Weight: 14 kg

DRUGS (7)
  1. CEFUROXIME [Suspect]
     Indication: BRONCHOPNEUMONIA
     Route: 042
     Dates: start: 20110223, end: 20110224
  2. MANNITOL [Concomitant]
     Dosage: 30ML PER DAY
     Route: 042
     Dates: start: 20110223, end: 20110226
  3. ZINNAT [Suspect]
     Indication: BRONCHOPNEUMONIA
     Dosage: 6ML TWICE PER DAY
     Route: 048
     Dates: start: 20110220, end: 20110223
  4. VENTOLIN [Concomitant]
     Indication: BRONCHITIS
     Dosage: 2.5ML THREE TIMES PER DAY
     Route: 048
     Dates: start: 20110214, end: 20110222
  5. IBUFEN [Concomitant]
     Indication: ARTHRALGIA
     Dosage: 5ML PER DAY
     Route: 048
     Dates: start: 20110223, end: 20110223
  6. DEXAMETHASONE SODIUM PHOSPHATE [Concomitant]
     Indication: BRAIN OEDEMA
     Dosage: 2ML TWICE PER DAY
     Route: 042
     Dates: start: 20110223, end: 20110301
  7. CILOXAN [Concomitant]
     Indication: EAR INFECTION
     Dosage: 4DROP THREE TIMES PER DAY
     Route: 061
     Dates: start: 20110224, end: 20110225

REACTIONS (15)
  - IRRITABILITY [None]
  - SPEECH DISORDER [None]
  - NEUROTOXICITY [None]
  - ARTHRITIS [None]
  - DYSPHAGIA [None]
  - GAIT DISTURBANCE [None]
  - SLUGGISHNESS [None]
  - EAR INFECTION [None]
  - HEMIPARESIS [None]
  - SALIVARY HYPERSECRETION [None]
  - EYE OEDEMA [None]
  - REFUSAL OF TREATMENT BY RELATIVE [None]
  - FALL [None]
  - COORDINATION ABNORMAL [None]
  - GENERAL PHYSICAL HEALTH DETERIORATION [None]
